FAERS Safety Report 8796949 (Version 1)
Quarter: 2012Q4

REPORT INFORMATION
  Report Type: 
  Country: US (occurrence: US)
  Receive Date: 20120919
  Receipt Date: 20120919
  Transmission Date: 20130627
  Serious: Yes (Other)
  Sender: FDA-Public Use
  Company Number: US-UCBSA-066071

PATIENT
  Age: 51 Year
  Sex: Male

DRUGS (7)
  1. VIMPAT [Suspect]
     Indication: CONVULSION
     Dates: start: 201207
  2. KEPPRA [Suspect]
     Indication: CONVULSION
     Dates: start: 201207
  3. DILANTIN [Concomitant]
     Indication: CONVULSION
  4. PHENOBARBITAL [Concomitant]
     Indication: CONVULSION
  5. PROPOFOL [Concomitant]
     Dates: start: 201207, end: 201207
  6. VERSED [Concomitant]
     Dates: start: 201207, end: 201207
  7. LAMICTAL [Concomitant]
     Dates: start: 201207, end: 201207

REACTIONS (2)
  - Convulsion [Unknown]
  - Hemiplegia [Recovering/Resolving]
